FAERS Safety Report 5253954-8 (Version None)
Quarter: 2007Q1

REPORT INFORMATION
  Report Type: 
  Country: None (occurrence: None)
  Receive Date: 20070228
  Receipt Date: 20070228
  Transmission Date: 20070707
  Serious: Yes (Other)
  Sender: FDA-Public Use
  Company Number: None

PATIENT
  Age: 75 Year
  Sex: Female
  Weight: 54.8852 kg

DRUGS (2)
  1. LIDOCAINE 2% [Suspect]
     Indication: NERVE BLOCK
     Dosage: 4ML X 1 INJECTION
     Dates: start: 20070219
  2. WYDASE [Suspect]
     Indication: NERVE BLOCK
     Dosage: 1 ML X 1 INJECTION
     Dates: start: 20070219

REACTIONS (4)
  - ANAESTHETIC COMPLICATION [None]
  - EYELID OEDEMA [None]
  - EYELID PTOSIS [None]
  - POST PROCEDURAL COMPLICATION [None]
